FAERS Safety Report 21172107 (Version 3)
Quarter: 2022Q4

REPORT INFORMATION
  Report Type: Spontaneous
  Country: US (occurrence: US)
  Receive Date: 20220804
  Receipt Date: 20221207
  Transmission Date: 20230112
  Serious: Yes (Life-Threatening, Hospitalization, Other)
  Sender: FDA-Public Use
  Company Number: US-MACLEODS PHARMACEUTICALS US LTD-MAC2022036678

PATIENT

DRUGS (5)
  1. AMLODIPINE [Suspect]
     Active Substance: AMLODIPINE BESYLATE
     Indication: Product used for unknown indication
     Dosage: UNK (500-550 MG)
     Route: 048
     Dates: start: 202107
  2. IBUPROFEN [Suspect]
     Active Substance: IBUPROFEN
     Indication: Product used for unknown indication
     Dosage: UNK
     Route: 065
     Dates: start: 202107
  3. ACETAMINOPHEN [Suspect]
     Active Substance: ACETAMINOPHEN
     Indication: Product used for unknown indication
     Dosage: UNK
     Route: 065
     Dates: start: 202107
  4. AMOXICILLIN [Suspect]
     Active Substance: AMOXICILLIN
     Indication: Product used for unknown indication
     Dosage: UNK
     Route: 065
     Dates: start: 202107
  5. HEPARIN [Concomitant]
     Active Substance: HEPARIN SODIUM
     Indication: Anticoagulant therapy
     Dosage: UNK (SYSTEMIC)
     Route: 065

REACTIONS (14)
  - Seizure [Recovering/Resolving]
  - Hypervolaemia [Recovering/Resolving]
  - Acute kidney injury [Recovering/Resolving]
  - Vasoplegia syndrome [Recovering/Resolving]
  - Circulatory collapse [Recovering/Resolving]
  - Toxicity to various agents [Recovering/Resolving]
  - Infarction [Unknown]
  - Cerebrovascular accident [Recovering/Resolving]
  - Unresponsive to stimuli [Recovering/Resolving]
  - Visual impairment [Recovering/Resolving]
  - Intentional overdose [Recovering/Resolving]
  - Pulmonary oedema [Recovering/Resolving]
  - Haemodynamic instability [Recovering/Resolving]
  - Hypotension [Recovering/Resolving]

NARRATIVE: CASE EVENT DATE: 20210701
